FAERS Safety Report 7782917-3 (Version None)
Quarter: 2011Q3

REPORT INFORMATION
  Report Type: 
  Country: None (occurrence: None)
  Receive Date: 20110927
  Receipt Date: 20110927
  Transmission Date: 20111222
  Serious: No
  Sender: FDA-Public Use
  Company Number: None

PATIENT
  Sex: Male
  Weight: 97.3 kg

DRUGS (2)
  1. CYTARABINE [Suspect]
     Dosage: 3080 MG
     Dates: end: 20110921
  2. DAUNORUBICIN HCL [Suspect]
     Dosage: 78 MG
     Dates: end: 20110917

REACTIONS (1)
  - BLOOD BILIRUBIN INCREASED [None]
